FAERS Safety Report 8831938 (Version 1)
Quarter: 2012Q4

REPORT INFORMATION
  Report Type: 
  Country: CA (occurrence: CA)
  Receive Date: 20121009
  Receipt Date: 20121009
  Transmission Date: 20130627
  Serious: Yes (Other)
  Sender: FDA-Public Use
  Company Number: CA-PFIZER INC-2012247568

PATIENT
  Age: 58 Year
  Sex: Female

DRUGS (2)
  1. CHAMPIX [Suspect]
     Indication: SMOKING CESSATION THERAPY
     Dosage: UNK
     Dates: start: 20120712, end: 2012
  2. CHAMPIX [Suspect]
     Dosage: UNK
     Dates: start: 2012

REACTIONS (4)
  - Gastric ulcer [Unknown]
  - Bladder disorder [Unknown]
  - Vaginal disorder [Unknown]
  - Abdominal pain upper [Unknown]
